FAERS Safety Report 21693165 (Version 1)
Quarter: 2022Q4

REPORT INFORMATION
  Report Type: Spontaneous
  Country: US (occurrence: None)
  Receive Date: 20221206
  Receipt Date: 20221206
  Transmission Date: 20230113
  Serious: Yes (Death)
  Sender: FDA-Public Use
  Company Number: None

PATIENT
  Age: 57 Year
  Sex: Male

DRUGS (14)
  1. PYRIMETHAMINE [Suspect]
     Active Substance: PYRIMETHAMINE
     Dosage: FREQUENCY : DAILY;?OTHER ROUTE : VIA PEG;?
     Route: 050
     Dates: start: 202207, end: 202211
  2. ASPIRIN 81MG EC LOW DOSE [Concomitant]
  3. ASPIRIN 81MG EC LOW DOSE [Concomitant]
  4. ALBUTEROL [Concomitant]
     Active Substance: ALBUTEROL
  5. ATORVASTATIN [Concomitant]
     Active Substance: ATORVASTATIN
  6. CINACALCET [Concomitant]
     Active Substance: CINACALCET
  7. FUROSEMIDE [Concomitant]
     Active Substance: FUROSEMIDE
  8. HUMULIN R U-100 INSULIN [Concomitant]
  9. LEUCOVORIN CALCIUM [Concomitant]
     Active Substance: LEUCOVORIN CALCIUM
  10. LIVTENCITY [Concomitant]
     Active Substance: MARIBAVIR
  11. MELATONIN [Concomitant]
     Active Substance: MELATONIN
  12. MIDODRINE [Concomitant]
     Active Substance: MIDODRINE
  13. QUETIAPINE [Concomitant]
     Active Substance: QUETIAPINE
  14. TACROLIMUS [Concomitant]
     Active Substance: TACROLIMUS

REACTIONS (1)
  - Death [None]
